FAERS Safety Report 5228626-6 (Version None)
Quarter: 2007Q1

REPORT INFORMATION
  Report Type: 
  Country: None (occurrence: None)
  Receive Date: 20070131
  Receipt Date: 20070122
  Transmission Date: 20070707
  Serious: Yes (Other)
  Sender: FDA-Public Use
  Company Number: GXKR2007GB01063

PATIENT
  Sex: Male

DRUGS (2)
  1. DIAZEPAM [Suspect]
     Indication: DRUG WITHDRAWAL SYNDROME
     Dosage: ORAL
     Route: 048
     Dates: start: 20061101
  2. LORAZEPAM [Concomitant]

REACTIONS (6)
  - ABDOMINAL DISCOMFORT [None]
  - CONVULSION [None]
  - DRY MOUTH [None]
  - POLLAKIURIA [None]
  - SYNCOPE [None]
  - TONGUE ULCERATION [None]
